FAERS Safety Report 15623787 (Version 1)
Quarter: 2018Q4

REPORT INFORMATION
  Report Type: Spontaneous
  Country: US (occurrence: US)
  Receive Date: 20181115
  Receipt Date: 20181115
  Transmission Date: 20190205
  Serious: Yes (Hospitalization)
  Sender: FDA-Public Use
  Company Number: US-TEVA-2018-US-974288

PATIENT
  Age: 27 Year
  Sex: Male

DRUGS (4)
  1. BENZTROPINE. [Concomitant]
     Active Substance: BENZTROPINE
     Route: 065
  2. VALPROIC ACID. [Suspect]
     Active Substance: VALPROIC ACID
     Indication: PRODUCT USED FOR UNKNOWN INDICATION
     Route: 048
  3. HALOPERIDOL. [Concomitant]
     Active Substance: HALOPERIDOL
     Route: 065
  4. ARIPIPRAZOLE. [Concomitant]
     Active Substance: ARIPIPRAZOLE
     Route: 065

REACTIONS (6)
  - Hyperammonaemia [Recovered/Resolved]
  - Thrombocytopenia [Recovered/Resolved]
  - Drug-induced liver injury [Recovered/Resolved]
  - Hepatic encephalopathy [Recovered/Resolved]
  - Encephalopathy [Recovered/Resolved]
  - Coagulopathy [Recovered/Resolved]
